FAERS Safety Report 4336248-4 (Version None)
Quarter: 2004Q2

REPORT INFORMATION
  Report Type: 
  Country: None (occurrence: None)
  Receive Date: 20040407
  Receipt Date: 20040319
  Transmission Date: 20050107
  Serious: Yes (Death)
  Sender: FDA-Public Use
  Company Number: JP_040302833

PATIENT
  Age: 37 Year
  Sex: Male

DRUGS (7)
  1. ZYPREXA [Suspect]
     Indication: ALCOHOLISM
     Dosage: 10 MG/1 DAY
     Dates: start: 20030207
  2. ZYPREXA [Suspect]
     Indication: MENTAL DISORDER
     Dosage: 10 MG/1 DAY
     Dates: start: 20030207
  3. RISPERDAL [Concomitant]
  4. SEPAZON (CLOXAZOLAM) [Concomitant]
  5. DIAZEPAM [Concomitant]
  6. HIRNAMIN (LEVOMEPROMAZINE) [Concomitant]
  7. PYRETHIA (PROMETHAZINE HYDROCHLORIDE) [Concomitant]

REACTIONS (1)
  - COMPLETED SUICIDE [None]
